FAERS Safety Report 7591691-5 (Version None)
Quarter: 2011Q3

REPORT INFORMATION
  Report Type: 
  Country: None (occurrence: None)
  Receive Date: 20110706
  Receipt Date: 20110622
  Transmission Date: 20111222
  Serious: Yes (Hospitalization)
  Sender: FDA-Public Use
  Company Number: DE-BAYER-2011-057318

PATIENT
  Age: 36 Year
  Sex: Male

DRUGS (3)
  1. ACETAMINOPHEN [Concomitant]
     Indication: PROCEDURAL PAIN
     Dosage: UNK
     Dates: start: 20110421
  2. TEMAZEPAM [Suspect]
     Indication: MUSCLE CONTRACTURE
     Dosage: UNK
     Route: 048
     Dates: start: 20110421
  3. NAPROXEN SODIUM [Suspect]
     Indication: MUSCLE CONTRACTURE
     Dosage: UNK
     Route: 048
     Dates: start: 20110421

REACTIONS (4)
  - POLYDIPSIA [None]
  - BACK PAIN [None]
  - ASTHENIA [None]
  - NEPHRITIS [None]
